FAERS Safety Report 7473964-X (Version None)
Quarter: 2011Q2

REPORT INFORMATION
  Report Type: 
  Country: None (occurrence: None)
  Receive Date: 20110511
  Receipt Date: 20080312
  Transmission Date: 20111010
  Serious: Yes (Hospitalization, Other)
  Sender: FDA-Public Use
  Company Number: US-BAYER-200817215NA

PATIENT
  Age: 51 Year
  Sex: Male
  Weight: 90.703 kg

DRUGS (12)
  1. TRASYLOL [Suspect]
     Indication: MITRAL VALVE REPAIR
  2. TRASYLOL [Suspect]
     Indication: CORONARY ARTERY BYPASS
     Dosage: 200 ML CARDIOPULMONARY BYPASS PRIME
     Route: 042
     Dates: start: 20030206, end: 20030206
  3. ATENOLOL [Concomitant]
     Dosage: 25 MG, QD
     Route: 048
  4. MANNITOL [Concomitant]
     Dosage: UNK
     Dates: start: 20030206, end: 20030206
  5. PROTAMINE SULFATE [Concomitant]
     Dosage: 250MG/25ML
     Route: 042
     Dates: start: 20030206, end: 20030206
  6. METOPROLOL SUCCINATE [Concomitant]
     Dosage: 50 MG, BID
     Route: 048
     Dates: start: 20030203
  7. FUROSEMIDE [Concomitant]
     Dosage: 80 MG, UNK
     Route: 042
     Dates: start: 20030204, end: 20030204
  8. ANCEF [Concomitant]
     Dosage: 12 G, UNK
     Route: 042
     Dates: start: 20030206, end: 20030206
  9. LEVOPHED [Concomitant]
     Dosage: UNK
     Route: 042
     Dates: start: 20030206, end: 20030206
  10. NITROGLYCERIN [Concomitant]
     Dosage: UNK
     Route: 042
     Dates: start: 20030206, end: 20030206
  11. COZAAR [Concomitant]
     Dosage: 50 MG, QD
     Route: 048
     Dates: start: 20030205, end: 20030206
  12. HEPARIN [Concomitant]
     Dosage: UNK
     Route: 042
     Dates: start: 20030206, end: 20030206

REACTIONS (9)
  - EMOTIONAL DISTRESS [None]
  - INJURY [None]
  - ANXIETY [None]
  - PAIN [None]
  - ANHEDONIA [None]
  - FEAR [None]
  - DEPRESSION [None]
  - UNEVALUABLE EVENT [None]
  - RENAL FAILURE [None]
